FAERS Safety Report 19913290 (Version 1)
Quarter: 2021Q4

REPORT INFORMATION
  Report Type: Spontaneous
  Country: GB (occurrence: GB)
  Receive Date: 20211004
  Receipt Date: 20211004
  Transmission Date: 20220303
  Serious: Yes (Other)
  Sender: FDA-Public Use
  Company Number: None

PATIENT
  Age: 68 Year
  Sex: Male
  Weight: 114 kg

DRUGS (14)
  1. INDAPAMIDE [Suspect]
     Active Substance: INDAPAMIDE
     Indication: Product used for unknown indication
     Dosage: 1.5 MILLIGRAM, QD, MORNING.
     Dates: start: 20210914, end: 20210927
  2. AMLODIPINE [Concomitant]
     Active Substance: AMLODIPINE BESYLATE
     Dosage: 1 DOSAGE FORM, QD
     Dates: start: 20210705, end: 20210920
  3. CANDESARTAN [Concomitant]
     Active Substance: CANDESARTAN
     Dosage: 1 DOSAGE FORM, QD
     Dates: start: 20210927
  4. CETIRIZINE [Concomitant]
     Active Substance: CETIRIZINE HYDROCHLORIDE
     Dosage: 1 DOSAGE FORM, QD
     Dates: start: 20190520, end: 20210914
  5. CODEINE PHOSPHATE [Concomitant]
     Active Substance: CODEINE PHOSPHATE
     Dosage: UNK, TAKE 1 OR 2 4 TIMES/DAY WHEN REQUIRED (MAXIMUM 8 TABLETS)
     Dates: start: 20190816, end: 20210920
  6. IBUPROFEN [Concomitant]
     Active Substance: IBUPROFEN
     Dosage: 1 DOSAGE FORM, TID
     Dates: start: 20210924
  7. LACTULOSE [Concomitant]
     Active Substance: LACTULOSE
     Dosage: 15 MILLILITER, BID
     Dates: start: 20201012
  8. LANSOPRAZOLE [Concomitant]
     Active Substance: LANSOPRAZOLE
     Dosage: 1 DOSAGE FORM, BID
     Dates: start: 20210914, end: 20210920
  9. NAPROXEN [Concomitant]
     Active Substance: NAPROXEN
     Dosage: 1 DOSAGE FORM, BID
     Dates: start: 20210709, end: 20210914
  10. OMEPRAZOLE [Concomitant]
     Active Substance: OMEPRAZOLE
     Dosage: 1 DOSAGE FORM, QD
     Dates: start: 20190520
  11. ACETAMINOPHEN [Concomitant]
     Active Substance: ACETAMINOPHEN
     Dosage: UNK, TAKE 1 OR 2 TABLETS 4 TIMES A DAY/ WHEN REQUIRED.
     Dates: start: 20190716
  12. RAMIPRIL [Concomitant]
     Active Substance: RAMIPRIL
     Dosage: 1 DOSAGE FORM, QD
     Dates: start: 20190816, end: 20210705
  13. SENNA LEAF [Concomitant]
     Active Substance: SENNA LEAF
     Dosage: UNK, TAKE 1 OR 2 AT NIGHT
     Dates: start: 20210914
  14. TRIAMCINOLONE ACETONIDE [Concomitant]
     Active Substance: TRIAMCINOLONE ACETONIDE
     Dosage: 2 DOSAGE FORM, QD, ONE PUFF IN EACH NOSTRIL
     Route: 045
     Dates: start: 20190520, end: 20210914

REACTIONS (1)
  - Illness [Unknown]

NARRATIVE: CASE EVENT DATE: 20210927
